FAERS Safety Report 14593277 (Version 2)
Quarter: 2018Q2

REPORT INFORMATION
  Report Type: Spontaneous
  Country: CZ (occurrence: CZ)
  Receive Date: 20180302
  Receipt Date: 20180425
  Transmission Date: 20180711
  Serious: Yes (Other)
  Sender: FDA-Public Use
  Company Number: CZ-SA-2018SA004307

PATIENT
  Age: 43 Year
  Sex: Female
  Weight: 107.5 kg

DRUGS (5)
  1. INSULIN HUMAN NOS [Suspect]
     Active Substance: INSULIN HUMAN
     Indication: TYPE 2 DIABETES MELLITUS
     Route: 065
     Dates: start: 20060101
  2. METFORMIN [Suspect]
     Active Substance: METFORMIN HYDROCHLORIDE
     Indication: TYPE 2 DIABETES MELLITUS
     Route: 048
     Dates: start: 2006
  3. INSULIN LISPRO [Suspect]
     Active Substance: INSULIN LISPRO
     Indication: TYPE 2 DIABETES MELLITUS
     Dosage: 12-12-10 U (ADAPTED ACCORDING TO THE SACCHARIDES IN FOOD)
     Route: 065
  4. LOSARTAN. [Concomitant]
     Active Substance: LOSARTAN
     Indication: HYPERTENSION
     Route: 048
  5. INSULIN DETEMIR [Suspect]
     Active Substance: INSULIN DETEMIR
     Indication: TYPE 2 DIABETES MELLITUS
     Dosage: 34 U AT 8 PM, IU PLUS INSULIN DETEMIR DOSE:34 UNIT(S)
     Route: 058
     Dates: start: 2006

REACTIONS (6)
  - Maternal exposure during pregnancy [Unknown]
  - Live birth [Unknown]
  - Diabetes mellitus inadequate control [Recovered/Resolved]
  - Drug ineffective [Unknown]
  - Diabetic retinopathy [Recovering/Resolving]
  - Diabetic metabolic decompensation [Recovering/Resolving]

NARRATIVE: CASE EVENT DATE: 2006
